FAERS Safety Report 5946545-4 (Version None)
Quarter: 2008Q4

REPORT INFORMATION
  Report Type: 
  Country: None (occurrence: None)
  Receive Date: 20081110
  Receipt Date: 20081105
  Transmission Date: 20090506
  Serious: Yes (Hospitalization)
  Sender: FDA-Public Use
  Company Number: B0545432A

PATIENT
  Age: 40 Year
  Sex: Female

DRUGS (2)
  1. LAPATINIB [Suspect]
     Indication: BREAST CANCER
     Dosage: 1000MG PER DAY
     Route: 048
     Dates: start: 20080227
  2. DOCETAXEL [Suspect]
     Indication: BREAST CANCER
     Dosage: 100MGM2 PER DAY
     Route: 042
     Dates: start: 20080227

REACTIONS (3)
  - DYSPHAGIA [None]
  - FEBRILE NEUTROPENIA [None]
  - ODYNOPHAGIA [None]
